FAERS Safety Report 7393850-3 (Version None)
Quarter: 2011Q2

REPORT INFORMATION
  Report Type: 
  Country: None (occurrence: None)
  Receive Date: 20110405
  Receipt Date: 20110325
  Transmission Date: 20111010
  Serious: Yes (Death, Life-Threatening, Hospitalization)
  Sender: FDA-Public Use
  Company Number: JP-AMGEN-JPNCT2011005315

PATIENT
  Age: 18 Year
  Sex: Male
  Weight: 48 kg

DRUGS (9)
  1. ANTIHISTAMINES [Concomitant]
     Indication: PROPHYLAXIS
     Dosage: UNK
     Route: 065
  2. CORTICOSTEROIDS [Concomitant]
     Indication: PROPHYLAXIS
     Dosage: UNK
     Route: 065
  3. FLUOROURACIL [Concomitant]
     Indication: COLORECTAL CANCER
     Route: 040
     Dates: start: 20100924, end: 20101203
  4. HIRUDOID FORTE [Concomitant]
     Dosage: UNK
     Route: 062
  5. FLUOROURACIL [Concomitant]
     Route: 041
     Dates: start: 20100924, end: 20101203
  6. MYSER [Concomitant]
     Dosage: UNK
     Route: 062
  7. PANITUMUMAB [Suspect]
     Indication: COLORECTAL CANCER
     Dosage: 6 MG/KG, Q2WK
     Route: 041
     Dates: start: 20100924, end: 20101203
  8. IRINOTECAN HYDROCHLORIDE [Concomitant]
     Indication: COLORECTAL CANCER
     Route: 041
     Dates: start: 20100924, end: 20101203
  9. CALCIUM LEVOFOLINATE [Concomitant]
     Indication: COLORECTAL CANCER
     Route: 041
     Dates: start: 20100924, end: 20101203

REACTIONS (3)
  - BLOOD MAGNESIUM DECREASED [None]
  - PARONYCHIA [None]
  - COLORECTAL CANCER [None]
